FAERS Safety Report 7920083-1 (Version None)
Quarter: 2011Q4

REPORT INFORMATION
  Report Type: 
  Country: None (occurrence: None)
  Receive Date: 20111115
  Receipt Date: 20111103
  Transmission Date: 20120403
  Serious: Yes (Hospitalization, Other)
  Sender: FDA-Public Use
  Company Number: 2011110054

PATIENT
  Age: 27 Year
  Sex: Female

DRUGS (5)
  1. METHYLPREDNISOLONE [Concomitant]
  2. FLUOXETINE [Concomitant]
  3. ZOLPIDEM [Suspect]
     Indication: INSOMNIA RELATED TO ANOTHER MENTAL CONDITION
     Dosage: 10-20 MG (DAILY), 100-200 MG (DAILY, DURING THE DAY AND AT BEDTIME); (20 MG, DAILY)
  4. PREDNISOLONE [Concomitant]
  5. ANALGESICS [Concomitant]

REACTIONS (15)
  - TACHYCARDIA [None]
  - HYPERHIDROSIS [None]
  - SOMNOLENCE [None]
  - TREMOR [None]
  - INTENTIONAL DRUG MISUSE [None]
  - BLOOD PRESSURE INCREASED [None]
  - DROOLING [None]
  - CATATONIA [None]
  - IMMOBILE [None]
  - PYURIA [None]
  - LEUKOCYTOSIS [None]
  - HAEMATURIA [None]
  - MUSCLE RIGIDITY [None]
  - WAXY FLEXIBILITY [None]
  - AUTONOMIC NERVOUS SYSTEM IMBALANCE [None]
